FAERS Safety Report 4844573-3 (Version None)
Quarter: 2005Q4

REPORT INFORMATION
  Report Type: 
  Country: None (occurrence: None)
  Receive Date: 20051125
  Receipt Date: 20051116
  Transmission Date: 20060501
  Serious: Yes (Hospitalization, Other)
  Sender: FDA-Public Use
  Company Number: HQWYE313831OCT05

PATIENT
  Age: 50 Year
  Sex: Male
  Weight: 90.35 kg

DRUGS (4)
  1. ADVIL [Suspect]
     Indication: HEADACHE
     Dosage: 2 LIQUI-GELS ONE TIME, ORAL
     Route: 048
     Dates: start: 20051021, end: 20051021
  2. ADVIL [Suspect]
     Indication: PAIN
     Dosage: 2 LIQUI-GELS ONE TIME, ORAL
     Route: 048
     Dates: start: 20051021, end: 20051021
  3. DAYQUIL (DEXTROMETHORPHAN HYDROBROMIDE/GUAIFENSSIN/PARACETAMOL/PSEUDOE [Suspect]
     Indication: NASOPHARYNGITIS
     Dates: start: 20051021, end: 20051021
  4. HYDROCHLOROTHIAZIDE [Concomitant]

REACTIONS (16)
  - ANAPHYLACTIC REACTION [None]
  - BLOOD PRESSURE INCREASED [None]
  - DRUG HYPERSENSITIVITY [None]
  - DYSPNOEA [None]
  - LOCAL SWELLING [None]
  - OEDEMA PERIPHERAL [None]
  - OXYGEN SATURATION DECREASED [None]
  - PHARYNGEAL OEDEMA [None]
  - RASH MACULAR [None]
  - RESPIRATORY DISTRESS [None]
  - RESPIRATORY RATE INCREASED [None]
  - SWELLING FACE [None]
  - SWOLLEN TONGUE [None]
  - TONGUE DISORDER [None]
  - URTICARIA [None]
  - WHEEZING [None]
